FAERS Safety Report 11211262 (Version 1)
Quarter: 2015Q2

REPORT INFORMATION
  Report Type: Spontaneous
  Country: US (occurrence: None)
  Receive Date: 20150619
  Receipt Date: 20150619
  Transmission Date: 20150821
  Serious: Yes (Hospitalization)
  Sender: FDA-Public Use
  Company Number: None

PATIENT
  Age: 77 Year
  Sex: Male
  Weight: 67.2 kg

DRUGS (12)
  1. ALLOPURINOL. [Concomitant]
     Active Substance: ALLOPURINOL
  2. SENSIPAR [Concomitant]
     Active Substance: CINACALCET HYDROCHLORIDE
  3. AMARYL [Concomitant]
     Active Substance: GLIMEPIRIDE
  4. COREG [Concomitant]
     Active Substance: CARVEDILOL
  5. PLAVIX [Suspect]
     Active Substance: CLOPIDOGREL BISULFATE
     Indication: CORONARY ARTERY DISEASE
     Dosage: CHRONIC
     Route: 048
  6. PRAVACHOL [Concomitant]
     Active Substance: PRAVASTATIN SODIUM
  7. ASPIRIN. [Suspect]
     Active Substance: ASPIRIN
     Indication: CORONARY ARTERY DISEASE
     Route: 048
  8. SYNTHROID [Concomitant]
     Active Substance: LEVOTHYROXINE SODIUM
  9. RENVELA [Concomitant]
     Active Substance: SEVELAMER CARBONATE
  10. LASIX [Concomitant]
     Active Substance: FUROSEMIDE
  11. VASOTEC [Concomitant]
     Active Substance: ENALAPRIL MALEATE
  12. TEMOVATE [Concomitant]
     Active Substance: CLOBETASOL PROPIONATE

REACTIONS (7)
  - Gastrointestinal haemorrhage [None]
  - Fluid overload [None]
  - Acute respiratory failure [None]
  - Hypovolaemic shock [None]
  - Acute myocardial infarction [None]
  - Anaemia [None]
  - Dialysis [None]

NARRATIVE: CASE EVENT DATE: 20150125
